FAERS Safety Report 8322432-1 (Version None)
Quarter: 2012Q2

REPORT INFORMATION
  Report Type: 
  Country: None (occurrence: None)
  Receive Date: 20120430
  Receipt Date: 20120417
  Transmission Date: 20120825
  Serious: Yes (Other)
  Sender: FDA-Public Use
  Company Number: VE-ROCHE-CID000000002001812

PATIENT
  Sex: Female
  Weight: 48 kg

DRUGS (1)
  1. RITUXIMAB [Suspect]
     Indication: RHEUMATOID ARTHRITIS
     Route: 041
     Dates: start: 20120215

REACTIONS (5)
  - COUGH [None]
  - ARTHRALGIA [None]
  - EYE PRURITUS [None]
  - VOMITING [None]
  - PYREXIA [None]
